FAERS Safety Report 6840396-4 (Version None)
Quarter: 2010Q3

REPORT INFORMATION
  Report Type: 
  Country: None (occurrence: None)
  Receive Date: 20100714
  Receipt Date: 20100625
  Transmission Date: 20110219
  Serious: Yes (Other)
  Sender: FDA-Public Use
  Company Number: US-PFIZER INC-2008036531

PATIENT
  Sex: Female
  Weight: 61 kg

DRUGS (21)
  1. CELEBREX [Suspect]
     Indication: BONE PAIN
     Dosage: 20 MG, 3X/DAY
     Route: 048
  2. CELEBREX [Suspect]
     Indication: MUSCULOSKELETAL PAIN
  3. CELEBREX [Suspect]
     Indication: INFLAMMATION
  4. CELEBREX [Suspect]
     Indication: ARTHRITIS
  5. NORVASC [Suspect]
     Indication: MUSCULOSKELETAL PAIN
     Dosage: 20 MG, UNK
     Route: 048
     Dates: end: 20100601
  6. NORVASC [Suspect]
     Indication: INFLAMMATION
  7. NORVASC [Suspect]
     Indication: ARTHRITIS
  8. MOTRIN [Suspect]
     Dosage: 800 MG, 3X/DAY
     Route: 048
     Dates: start: 20100501
  9. CIPLOX [Suspect]
     Indication: MUSCULOSKELETAL PAIN
     Dosage: UNK
     Route: 048
     Dates: start: 20100101, end: 20100601
  10. CIPLOX [Suspect]
     Indication: INFLAMMATION
  11. CIPLOX [Suspect]
     Indication: ARTHRITIS
  12. MOBIC [Suspect]
     Indication: MUSCULOSKELETAL PAIN
     Dosage: 20 MG, UNK
     Route: 048
     Dates: start: 20080101
  13. MOBIC [Suspect]
     Indication: INFLAMMATION
  14. MOBIC [Suspect]
  15. MOBIC [Suspect]
     Indication: ARTHRITIS
  16. NAPROXEN [Suspect]
     Indication: MUSCULOSKELETAL PAIN
     Dosage: UNK, 3X/DAY
     Dates: start: 20090101
  17. NAPROXEN [Suspect]
     Indication: INFLAMMATION
  18. NAPROXEN [Suspect]
     Indication: ARTHRITIS
  19. TYLENOL [Suspect]
     Indication: MUSCULOSKELETAL PAIN
     Dosage: UNK
     Route: 048
  20. TYLENOL [Suspect]
     Indication: INFLAMMATION
  21. TYLENOL [Suspect]
     Indication: ARTHRITIS

REACTIONS (2)
  - DRUG INEFFECTIVE [None]
  - ULCER [None]
